FAERS Safety Report 13673427 (Version 1)
Quarter: 2017Q2

REPORT INFORMATION
  Report Type: Spontaneous
  Country: AU (occurrence: AU)
  Receive Date: 20170621
  Receipt Date: 20170621
  Transmission Date: 20170830
  Serious: Yes (Other)
  Sender: FDA-Public Use
  Company Number: AU-ASTRAZENECA-2017SE60766

PATIENT
  Age: 37 Year
  Sex: Female

DRUGS (3)
  1. LYNPARZA [Suspect]
     Active Substance: OLAPARIB
     Indication: BRCA2 GENE MUTATION
     Route: 048
  2. ZOLADEX [Suspect]
     Active Substance: GOSERELIN ACETATE
     Dosage: DOSE UNKNOWN
     Route: 058
     Dates: end: 2014
  3. TAMOXIFEN [Suspect]
     Active Substance: TAMOXIFEN
     Route: 048
     Dates: end: 2013

REACTIONS (7)
  - Breast cancer recurrent [Unknown]
  - Bone lesion [Unknown]
  - Pleural effusion [Unknown]
  - Off label use [Unknown]
  - BRCA2 gene mutation [Unknown]
  - Computerised tomogram abnormal [Unknown]
  - Carbohydrate antigen 15-3 increased [Unknown]
